FAERS Safety Report 10151431 (Version 3)
Quarter: 2014Q2

REPORT INFORMATION
  Report Type: Spontaneous
  Country: JP (occurrence: JP)
  Receive Date: 20140503
  Receipt Date: 20140521
  Transmission Date: 20141212
  Serious: Yes (Other)
  Sender: FDA-Public Use
  Company Number: PHHY2014JP047342

PATIENT
  Age: 44 Year
  Sex: Female
  Weight: 50 kg

DRUGS (14)
  1. CERTICAN [Suspect]
     Indication: IMMUNOSUPPRESSION
     Dosage: 0.5 MG, PER DAY
     Route: 048
  2. CERTICAN [Suspect]
     Dosage: 1 MG, DAILY
     Route: 048
  3. NEORAL [Suspect]
     Indication: RENAL TRANSPLANT
     Route: 048
  4. SIMULECT [Suspect]
     Indication: RENAL TRANSPLANT
     Dosage: 20 MG, UNK
     Route: 042
  5. SIMULECT [Suspect]
     Indication: IMMUNOSUPPRESSION
  6. TACROLIMUS [Suspect]
     Indication: IMMUNOSUPPRESSION
  7. MYCOPHENOLATE MOFETIL [Suspect]
     Indication: IMMUNOSUPPRESSION
     Route: 048
  8. MYCOPHENOLATE MOFETIL [Suspect]
     Dosage: UNK
     Route: 048
  9. METHYLPREDNISOLONE [Suspect]
     Indication: IMMUNOSUPPRESSION
  10. MIZORIBINE [Suspect]
     Dosage: 150 MG, PER DAY
  11. MIZORIBINE [Suspect]
     Dosage: 200 MG, PER DAY
  12. MIZORIBINE [Suspect]
     Dosage: 300 MG, PER DAY
  13. OKT 3 [Concomitant]
     Indication: TRANSPLANT REJECTION
  14. RITUXIMAB [Concomitant]
     Indication: TRANSPLANT REJECTION

REACTIONS (8)
  - Hyperlipidaemia [Recovered/Resolved]
  - Blood creatinine increased [Recovered/Resolved]
  - Oedema [Recovered/Resolved]
  - Transplant rejection [Unknown]
  - Histiocytosis haematophagic [Unknown]
  - Upper respiratory tract inflammation [Unknown]
  - Cytomegalovirus infection [Unknown]
  - Diarrhoea [Unknown]
